FAERS Safety Report 7561489-2 (Version None)
Quarter: 2011Q2

REPORT INFORMATION
  Report Type: 
  Country: None (occurrence: None)
  Receive Date: 20110621
  Receipt Date: 20110615
  Transmission Date: 20111010
  Serious: Yes (Life-Threatening, Other)
  Sender: FDA-Public Use
  Company Number: GB-ABBOTT-11P-167-0720665-00

PATIENT
  Sex: Female
  Weight: 58.7 kg

DRUGS (14)
  1. ACETAMINOPHEN [Concomitant]
     Indication: PRODUCT USED FOR UNKNOWN INDICATION
     Dosage: 1-2 TABLETS 4 TIME IN ONE DAY
  2. CODEINE SULFATE [Concomitant]
     Indication: PRODUCT USED FOR UNKNOWN INDICATION
     Dosage: PRN, TAKE 2 TABLETS
  3. FLUCONAZOLE [Concomitant]
     Indication: PRODUCT USED FOR UNKNOWN INDICATION
  4. NOVOMPID PENFILL [Concomitant]
     Indication: PRODUCT USED FOR UNKNOWN INDICATION
     Dosage: 100 UNITS/ML - ML AS DIRECTED
  5. ASPIRIN [Concomitant]
     Indication: PRODUCT USED FOR UNKNOWN INDICATION
     Dosage: DISPERSABLE
  6. CREON [Concomitant]
     Indication: PRODUCT USED FOR UNKNOWN INDICATION
  7. LOPERAMIDE HYDROCHLORIDE [Concomitant]
     Indication: PRODUCT USED FOR UNKNOWN INDICATION
     Dosage: 2 TO BE TAKEN
  8. SIMVASTATIN [Concomitant]
     Indication: PRODUCT USED FOR UNKNOWN INDICATION
     Dosage: NOCTE
  9. FLUOXETINE HCL [Concomitant]
     Indication: PRODUCT USED FOR UNKNOWN INDICATION
  10. CLARITHROMYCIN [Suspect]
     Indication: LOWER RESPIRATORY TRACT INFECTION
     Route: 048
     Dates: start: 20110204, end: 20110211
  11. CANESTAN HC CREAM [Concomitant]
     Indication: PRODUCT USED FOR UNKNOWN INDICATION
  12. LEVEMIR PENFILL INJECTION [Concomitant]
     Dosage: 100UNITS/ML-3ML AS DIRECTED
  13. SUDOCREM [Concomitant]
     Indication: PRODUCT USED FOR UNKNOWN INDICATION
     Dosage: 3-4 TIMES A DAY
  14. LEVEMIR PENFILL INJECTION [Concomitant]
     Indication: PRODUCT USED FOR UNKNOWN INDICATION
     Dosage: 100UNITS/ML-3ML AS DIRECTED

REACTIONS (3)
  - BLOOD GLUCOSE ABNORMAL [None]
  - HYPOGLYCAEMIA [None]
  - ILL-DEFINED DISORDER [None]
